FAERS Safety Report 4317765-X (Version None)
Quarter: 2004Q1

REPORT INFORMATION
  Report Type: 
  Country: None (occurrence: None)
  Receive Date: 20040315
  Receipt Date: 20030407
  Transmission Date: 20041129
  Serious: Yes (Hospitalization)
  Sender: FDA-Public Use
  Company Number: WAES 0304USA00820

PATIENT
  Age: 75 Year
  Sex: Female
  Weight: 59 kg

DRUGS (6)
  1. TYLENOL (CAPLET) [Concomitant]
     Dates: start: 19950101
  2. ESTRADIOL [Concomitant]
     Indication: MENOPAUSE
  3. SYNTHROID [Concomitant]
     Indication: HYPERTHYROIDISM
  4. PROVERA [Concomitant]
  5. VIOXX [Suspect]
     Indication: OSTEOARTHRITIS
     Route: 048
     Dates: end: 20010101
  6. VIOXX [Suspect]
     Route: 048
     Dates: end: 20010101

REACTIONS (20)
  - ACUTE MYOCARDIAL INFARCTION [None]
  - AORTIC VALVE INCOMPETENCE [None]
  - ARTHRALGIA [None]
  - ATRIOVENTRICULAR BLOCK COMPLETE [None]
  - CERVICAL DYSPLASIA [None]
  - CORONARY ARTERY DISEASE [None]
  - CORONARY ARTERY OCCLUSION [None]
  - HAEMATURIA [None]
  - INJURY [None]
  - KLEBSIELLA INFECTION [None]
  - MICTURITION URGENCY [None]
  - MITRAL VALVE INCOMPETENCE [None]
  - OSTEOARTHRITIS [None]
  - RECTAL HAEMORRHAGE [None]
  - SPINAL COLUMN STENOSIS [None]
  - SPONDYLOSIS [None]
  - URINARY TRACT INFECTION [None]
  - UTERINE LEIOMYOMA [None]
  - VENTRICULAR DYSFUNCTION [None]
  - VENTRICULAR FIBRILLATION [None]
